FAERS Safety Report 9634992 (Version 1)
Quarter: 2013Q4

REPORT INFORMATION
  Report Type: Spontaneous
  Country: CH (occurrence: None)
  Receive Date: 20131017
  Receipt Date: 20131017
  Transmission Date: 20140711
  Serious: Yes (Hospitalization)
  Sender: FDA-Public Use
  Company Number: 20130543

PATIENT
  Age: 31 Year
  Sex: Male

DRUGS (9)
  1. VENOFER [Suspect]
     Indication: ANAEMIA
     Route: 042
     Dates: start: 20130827, end: 20130827
  2. CONTRAMAL [Suspect]
     Indication: ANALGESIC THERAPY
     Route: 048
     Dates: start: 20130826
  3. DAFALGAN CODEINE [Suspect]
     Indication: ANALGESIC THERAPY
     Dosage: 2DF ORAL
     Route: 048
     Dates: start: 20130827, end: 20130831
  4. HEPARIN SODIUM [Suspect]
     Dosage: DOSE UNSPECIFIED
     Dates: start: 20130822, end: 20130904
  5. KARDEGIC (ACETYLSALICYLATE LYSINE) [Suspect]
     Indication: ANTIPHOSPHOLIPID SYNDROME
     Route: 048
     Dates: start: 20130822, end: 20130904
  6. TARDYFERON B9 [Suspect]
     Indication: ANAEMIA
     Dosage: 2DF, 2 IN 1 DAY ORAL
     Route: 048
     Dates: start: 20130822, end: 20130826
  7. TOPALGIC (TRAMADOL HYDROCHLORIDE) [Suspect]
     Indication: ANALGESIC THERAPY
     Dosage: 1 DF, 1 IN 1 DAY ORAL
     Dates: start: 20130828
  8. DOLIPRANE (PARACETAMOL) [Suspect]
     Indication: ANALGESIC THERAPY
     Dosage: 1GM, 3 IN 1 D ORAL
     Route: 048
     Dates: start: 20130826, end: 20130827
  9. AMOXICILLIN [Suspect]
     Indication: LUNG DISORDER
     Dosage: 1GM, 3 TIMES PER DAY
     Dates: start: 20130819, end: 20130827

REACTIONS (4)
  - Pulmonary embolism [None]
  - Rash maculo-papular [None]
  - Rash erythematous [None]
  - Thrombosis [None]
